FAERS Safety Report 8818966 (Version 1)
Quarter: 2012Q4

REPORT INFORMATION
  Report Type: 
  Country: BR (occurrence: BR)
  Receive Date: 20121001
  Receipt Date: 20121001
  Transmission Date: 20130627
  Serious: Yes (Other)
  Sender: FDA-Public Use
  Company Number: PHHY2012BR084700

PATIENT
  Sex: Male

DRUGS (5)
  1. FORASEQ [Suspect]
     Indication: BRONCHITIS
     Dosage: 2 DF, (2 inhalations a day)
  2. NEULEPTIL [Concomitant]
     Indication: DEPRESSION
     Dosage: 5 mg, (half a tablet a day)
     Route: 048
  3. SIMETHICONE [Concomitant]
     Indication: FLATULENCE
     Dosage: 120 mg, (3 tablets a day)
     Route: 048
  4. ASPIRINE [Concomitant]
     Indication: BLOOD DISORDER
     Dosage: 100 mg, QD
     Route: 048
  5. BEROTEC [Concomitant]
     Indication: DYSPNOEA
     Dosage: UNK UKN, PRN

REACTIONS (2)
  - Prostate cancer [Recovering/Resolving]
  - Depression [Recovered/Resolved]
